FAERS Safety Report 13488120 (Version 1)
Quarter: 2017Q2

REPORT INFORMATION
  Report Type: Spontaneous
  Country: US (occurrence: US)
  Receive Date: 20170426
  Receipt Date: 20170426
  Transmission Date: 20170830
  Serious: Yes (Hospitalization, Other)
  Sender: FDA-Public Use
  Company Number: US-ALKERMES INC.-ALK-2016-002618

PATIENT
  Age: 25 Year
  Sex: Male

DRUGS (1)
  1. VIVITROL [Suspect]
     Active Substance: NALTREXONE
     Indication: DRUG USE DISORDER
     Dosage: UNK
     Route: 030
     Dates: start: 2014

REACTIONS (4)
  - Overdose [Recovered/Resolved]
  - Road traffic accident [Recovered/Resolved]
  - Therapeutic response shortened [Recovered/Resolved]
  - Drug use disorder [Recovered/Resolved]
